APPROVED DRUG PRODUCT: MOMETASONE FUROATE
Active Ingredient: MOMETASONE FUROATE
Strength: 0.05MG/SPRAY
Dosage Form/Route: SPRAY, METERED;NASAL
Application: A217460 | Product #001
Applicant: AMNEAL PHARMACEUTICALS LLC
Approved: Jun 14, 2023 | RLD: No | RS: No | Type: DISCN